FAERS Safety Report 24710068 (Version 1)
Quarter: 2024Q4

REPORT INFORMATION
  Report Type: Other
  Country: IN (occurrence: IN)
  Receive Date: 20241209
  Receipt Date: 20241209
  Transmission Date: 20250114
  Serious: Yes (Hospitalization, Other)
  Sender: ANI
  Company Number: IN-ANIPHARMA-013083

PATIENT
  Sex: Female

DRUGS (4)
  1. CYCLOPHOSPHAMIDE [Suspect]
     Active Substance: CYCLOPHOSPHAMIDE
     Indication: Metaplastic breast carcinoma
     Dosage: ADJUVANT CHEMOTHERAPY WITH FOUR CYCLES
  2. DOXORUBICIN [Concomitant]
     Active Substance: DOXORUBICIN
     Indication: Metaplastic breast carcinoma
     Dosage: ADJUVANT CHEMOTHERAPY WITH FOUR CYCLES
  3. PACLITAXEL [Concomitant]
     Active Substance: PACLITAXEL
     Indication: Metaplastic breast carcinoma
     Dosage: ADJUVANT CHEMOTHERAPY WITH FOUR CYCLES
  4. EXEMESTANE [Concomitant]
     Active Substance: EXEMESTANE
     Indication: Breast cancer metastatic
     Dosage: HORMONAL THERAPY

REACTIONS (1)
  - Sweat gland tumour [Recovered/Resolved]
